FAERS Safety Report 22386300 (Version 2)
Quarter: 2023Q2

REPORT INFORMATION
  Report Type: Spontaneous
  Country: JP (occurrence: JP)
  Receive Date: 20230530
  Receipt Date: 20230613
  Transmission Date: 20230722
  Serious: Yes (Hospitalization)
  Sender: FDA-Public Use
  Company Number: JP-MTPC-MTPC2023-0013558

PATIENT
  Age: 65 Year
  Sex: Male

DRUGS (1)
  1. EDARAVONE [Suspect]
     Active Substance: EDARAVONE
     Indication: Amyotrophic lateral sclerosis
     Dosage: 60 MILLIGRAM, QD
     Route: 041
     Dates: start: 2021, end: 202211

REACTIONS (3)
  - General physical health deterioration [Unknown]
  - Wound infection [Recovered/Resolved]
  - Pyrexia [Recovered/Resolved]
